FAERS Safety Report 5946914-2 (Version None)
Quarter: 2008Q4

REPORT INFORMATION
  Report Type: 
  Country: None (occurrence: None)
  Receive Date: 20081107
  Receipt Date: 20081107
  Transmission Date: 20090506
  Serious: Yes (Hospitalization)
  Sender: FDA-Public Use
  Company Number: None

PATIENT
  Age: 50 Year
  Sex: Female
  Weight: 68.0396 kg

DRUGS (1)
  1. GEODON [Suspect]
     Dosage: 60MG QHS PO
     Route: 048
     Dates: start: 20081104, end: 20081104

REACTIONS (5)
  - APHASIA [None]
  - ASTHENIA [None]
  - DRY MOUTH [None]
  - EYE DISORDER [None]
  - MUSCLE SPASMS [None]
